FAERS Safety Report 6168408-4 (Version None)
Quarter: 2009Q2

REPORT INFORMATION
  Report Type: 
  Country: None (occurrence: None)
  Receive Date: 20090427
  Receipt Date: 20090422
  Transmission Date: 20091009
  Serious: Yes (Hospitalization)
  Sender: FDA-Public Use
  Company Number: US-BRISTOL-MYERS SQUIBB COMPANY-14599344

PATIENT
  Age: 5 Decade
  Sex: Female

DRUGS (3)
  1. IXEMPRA KIT [Suspect]
     Indication: BREAST CANCER METASTATIC
     Dosage: IN BETWEEN 2ND-3RD CYCLES
     Dates: start: 20090201
  2. H1 ANTAGONIST [Concomitant]
     Indication: PREMEDICATION
  3. H2 ANTAGONIST [Concomitant]
     Indication: PREMEDICATION

REACTIONS (2)
  - ENCEPHALITIS [None]
  - NEUROPATHY PERIPHERAL [None]
